FAERS Safety Report 6082074-8 (Version None)
Quarter: 2009Q1

REPORT INFORMATION
  Report Type: 
  Country: None (occurrence: None)
  Receive Date: 20090218
  Receipt Date: 20081029
  Transmission Date: 20090719
  Serious: No
  Sender: FDA-Public Use
  Company Number: US-BRISTOL-MYERS SQUIBB COMPANY-14388508

PATIENT
  Age: 51 Year
  Sex: Female

DRUGS (1)
  1. GLUCOPHAGE [Suspect]
     Dosage: PATIENT IS ON GLUCOPHAGE FOR 5-10 YEARS

REACTIONS (1)
  - GASTROINTESTINAL HAEMORRHAGE [None]
